FAERS Safety Report 12919669 (Version 1)
Quarter: 2016Q4

REPORT INFORMATION
  Report Type: Spontaneous
  Country: US (occurrence: US)
  Receive Date: 20161103
  Receipt Date: 20161103
  Transmission Date: 20170207
  Serious: Yes (Hospitalization)
  Sender: FDA-Public Use
  Company Number: None

PATIENT
  Age: 37 Year
  Sex: Female

DRUGS (9)
  1. OXYCODONE [Concomitant]
     Active Substance: OXYCODONE
  2. HYDROXYUREA. [Concomitant]
     Active Substance: HYDROXYUREA
  3. ALPRAZOLAM. [Concomitant]
     Active Substance: ALPRAZOLAM
  4. XARELTO [Concomitant]
     Active Substance: RIVAROXABAN
  5. JADENU [Suspect]
     Active Substance: DEFERASIROX
     Route: 048
  6. FOLIC ACID. [Concomitant]
     Active Substance: FOLIC ACID
  7. HYDROMORPHON [Concomitant]
     Active Substance: HYDROMORPHONE
  8. CEPHALEXIN. [Concomitant]
     Active Substance: CEPHALEXIN
  9. LEVOFLOXACIN. [Concomitant]
     Active Substance: LEVOFLOXACIN

REACTIONS (1)
  - Therapy cessation [None]

NARRATIVE: CASE EVENT DATE: 2016
